FAERS Safety Report 14949241 (Version 3)
Quarter: 2018Q3

REPORT INFORMATION
  Report Type: Spontaneous
  Country: US (occurrence: US)
  Receive Date: 20180529
  Receipt Date: 20180726
  Transmission Date: 20181010
  Serious: Yes (Hospitalization, Other)
  Sender: FDA-Public Use
  Company Number: US-SAOL THERAPEUTICS-2018SAO00813

PATIENT
  Age: 37 Year
  Sex: Male
  Weight: 68.27 kg

DRUGS (2)
  1. BACLOFEN. [Suspect]
     Active Substance: BACLOFEN
     Indication: SPINAL CORD INJURY
  2. BACLOFEN. [Suspect]
     Active Substance: BACLOFEN
     Indication: MUSCLE SPASTICITY
     Dosage: UNK
     Route: 037
     Dates: start: 2003

REACTIONS (13)
  - Device kink [Recovered/Resolved]
  - Dyspnoea [Unknown]
  - Drug dose omission [Recovered/Resolved]
  - Headache [Recovered/Resolved]
  - Implant site pain [Recovering/Resolving]
  - Chest pain [Unknown]
  - Autonomic dysreflexia [Recovered/Resolved]
  - Diarrhoea [Unknown]
  - Medical device site erythema [Recovering/Resolving]
  - Feeding disorder [Unknown]
  - Abdominal discomfort [Unknown]
  - Drug withdrawal syndrome [Recovered/Resolved]
  - Osteomyelitis [Unknown]

NARRATIVE: CASE EVENT DATE: 2005
